FAERS Safety Report 6669459-3 (Version None)
Quarter: 2010Q2

REPORT INFORMATION
  Report Type: 
  Country: None (occurrence: None)
  Receive Date: 20100406
  Receipt Date: 20100325
  Transmission Date: 20101027
  Serious: Yes (Other)
  Sender: FDA-Public Use
  Company Number: PHHY2010US19458

PATIENT
  Age: 26 Year
  Sex: Male

DRUGS (2)
  1. IMATINIB [Suspect]
     Indication: CHRONIC MYELOID LEUKAEMIA
     Dosage: 400 MG DAILY
     Dates: start: 20020101
  2. PANAX GINSENG [Interacting]

REACTIONS (11)
  - ABDOMINAL PAIN UPPER [None]
  - APOPTOSIS [None]
  - BIOPSY LIVER ABNORMAL [None]
  - DRUG INTERACTION [None]
  - HEPATIC FIBROSIS [None]
  - HEPATIC INFILTRATION EOSINOPHILIC [None]
  - HEPATIC NECROSIS [None]
  - HEPATIC STEATOSIS [None]
  - HEPATITIS [None]
  - INFLAMMATION [None]
  - LYMPHOCYTIC INFILTRATION [None]
